FAERS Safety Report 15253497 (Version 1)
Quarter: 2018Q3

REPORT INFORMATION
  Report Type: Spontaneous
  Country: US (occurrence: US)
  Receive Date: 20180808
  Receipt Date: 20180808
  Transmission Date: 20181010
  Serious: Yes (Death)
  Sender: FDA-Public Use
  Company Number: US-ROCHE-2166529

PATIENT
  Age: 63 Year
  Sex: Male
  Weight: 68.55 kg

DRUGS (1)
  1. ALECENSA [Suspect]
     Active Substance: ALECTINIB HYDROCHLORIDE
     Indication: LUNG NEOPLASM MALIGNANT
     Dosage: TAKE WITH FOOD
     Route: 048
     Dates: start: 20180712, end: 20180728

REACTIONS (1)
  - Death [Fatal]

NARRATIVE: CASE EVENT DATE: 20180728
